FAERS Safety Report 4519510-1 (Version None)
Quarter: 2005Q1

REPORT INFORMATION
  Report Type: 
  Country: None (occurrence: None)
  Receive Date: 20041101
  Receipt Date: 20040105
  Transmission Date: 20050727
  Serious: Yes (Other)
  Sender: FDA-Public Use
  Company Number: HQWYE170107JAN04

PATIENT
  Age: 37 Year
  Sex: Female
  Weight: 56.75 kg

DRUGS (1)
  1. PREMARIN [Suspect]
     Indication: OESTROGEN REPLACEMENT THERAPY
     Dosage: 0.9MG TABLET, DAILY, ORAL
     Route: 048
     Dates: start: 19990101, end: 20031101

REACTIONS (3)
  - BURNING SENSATION [None]
  - DIZZINESS [None]
  - PAIN IN EXTREMITY [None]
